FAERS Safety Report 14955794 (Version 1)
Quarter: 2018Q2

REPORT INFORMATION
  Report Type: Spontaneous
  Country: US (occurrence: US)
  Receive Date: 20180531
  Receipt Date: 20180531
  Transmission Date: 20180711
  Serious: No
  Sender: FDA-Public Use
  Company Number: US-JNJFOC-20180516005

PATIENT
  Sex: Male

DRUGS (9)
  1. READI-CAT [Concomitant]
     Active Substance: BARIUM SULFATE
     Dosage: 2.1 % (W/V), 2.0% (W/W)
     Route: 048
     Dates: start: 20170911
  2. ZYTIGA [Suspect]
     Active Substance: ABIRATERONE ACETATE
     Indication: PROSTATE CANCER
     Dosage: 4 TABLETS STRENGTH 250 MG
     Route: 048
     Dates: start: 20170801
  3. NORCO [Concomitant]
     Active Substance: ACETAMINOPHEN\HYDROCODONE BITARTRATE
     Indication: PAIN
     Dosage: 10-325 MG, TAKE ONE TABLET EVERY 4-6 HOURS
     Route: 048
     Dates: start: 20180117
  4. LUPRON [Concomitant]
     Active Substance: LEUPROLIDE ACETATE
     Route: 030
  5. ZYTIGA [Suspect]
     Active Substance: ABIRATERONE ACETATE
     Indication: PROSTATE CANCER
     Route: 048
  6. PREDNISONE. [Concomitant]
     Active Substance: PREDNISONE
     Indication: PROSTATE CANCER
     Route: 048
  7. ZOMETA [Concomitant]
     Active Substance: ZOLEDRONIC ACID
     Route: 065
     Dates: start: 201201
  8. PREDNISONE. [Concomitant]
     Active Substance: PREDNISONE
     Indication: PROSTATE CANCER
     Route: 048
     Dates: start: 20180509
  9. LUPRON [Concomitant]
     Active Substance: LEUPROLIDE ACETATE
     Route: 030

REACTIONS (1)
  - Adverse event [Unknown]
